FAERS Safety Report 5557988-5 (Version None)
Quarter: 2007Q4

REPORT INFORMATION
  Report Type: 
  Country: None (occurrence: None)
  Receive Date: 20071214
  Receipt Date: 20071129
  Transmission Date: 20080405
  Serious: Yes (Other)
  Sender: FDA-Public Use
  Company Number: ES-RANBAXY-2007RR-11777

PATIENT

DRUGS (2)
  1. ACETAMINOPHEN [Suspect]
     Indication: OSTEOARTHRITIS
     Dosage: 1950 MG, QD
  2. ALCOHOL [Concomitant]
     Dosage: {10 G, QD

REACTIONS (1)
  - LIVER INJURY [None]
